FAERS Safety Report 23219248 (Version 3)
Quarter: 2024Q4

REPORT INFORMATION
  Report Type: Report from Study
  Country: CN (occurrence: CN)
  Receive Date: 20231122
  Receipt Date: 20241210
  Transmission Date: 20250115
  Serious: Yes (Hospitalization)
  Sender: EISAI
  Company Number: CN-Eisai-EC-2023-153175

PATIENT
  Age: 66 Year
  Sex: Male
  Weight: 60 kg

DRUGS (14)
  1. LENVATINIB [Suspect]
     Active Substance: LENVATINIB
     Indication: Hepatocellular carcinoma
     Route: 048
     Dates: start: 20200909, end: 20201229
  2. LENVATINIB [Suspect]
     Active Substance: LENVATINIB
     Route: 048
     Dates: start: 20210111, end: 20241111
  3. TORIPALIMAB [Suspect]
     Active Substance: TORIPALIMAB
     Indication: Hepatocellular carcinoma
     Route: 041
     Dates: start: 20200909, end: 2024
  4. ENTECAVIR [Concomitant]
     Active Substance: ENTECAVIR
     Indication: Hepatitis B
     Route: 048
     Dates: start: 2001
  5. HYDROCHLOROTHIAZIDE\IRBESARTAN [Concomitant]
     Active Substance: HYDROCHLOROTHIAZIDE\IRBESARTAN
     Indication: Hypertension
     Route: 048
     Dates: start: 2003
  6. TAMSULOSIN HYDROCHLORIDE [Concomitant]
     Active Substance: TAMSULOSIN HYDROCHLORIDE
     Indication: Urinary tract disorder prophylaxis
     Route: 048
     Dates: start: 20200222
  7. CAFFEIC ACID [Concomitant]
     Active Substance: CAFFEIC ACID
     Indication: Platelet count decreased
     Route: 048
     Dates: start: 20210407
  8. CODEINE PHOSPHATE\IBUPROFEN [Concomitant]
     Active Substance: CODEINE PHOSPHATE\IBUPROFEN
     Indication: Arthralgia
     Route: 048
     Dates: start: 20221001
  9. LU XUE JING [Concomitant]
     Indication: Anaemia
     Route: 048
     Dates: start: 20231101, end: 202408
  10. LU XUE JING [Concomitant]
     Indication: Platelet count decreased
  11. LU XUE JING [Concomitant]
     Indication: White blood cell count decreased
  12. LEUCOGEN [Concomitant]
     Active Substance: LEUCOGEN
     Route: 048
     Dates: start: 20220605, end: 20241102
  13. AVATROMBOPAG [Concomitant]
     Active Substance: AVATROMBOPAG
     Indication: Platelet count decreased
     Route: 048
     Dates: start: 20230325
  14. LACTULOSE [Concomitant]
     Active Substance: LACTULOSE
     Indication: Constipation
     Route: 048
     Dates: start: 20241022, end: 20241102

REACTIONS (2)
  - Diarrhoea [Recovering/Resolving]
  - Periodontal disease [Recovered/Resolved]

NARRATIVE: CASE EVENT DATE: 20201225
